FAERS Safety Report 6045028-3 (Version None)
Quarter: 2009Q1

REPORT INFORMATION
  Report Type: 
  Country: None (occurrence: None)
  Receive Date: 20090121
  Receipt Date: 20090114
  Transmission Date: 20090719
  Serious: Yes (Hospitalization, Other)
  Sender: FDA-Public Use
  Company Number: US-BRISTOL-MYERS SQUIBB COMPANY-14470090

PATIENT
  Age: 65 Year
  Sex: Male
  Weight: 52 kg

DRUGS (3)
  1. ERBITUX [Suspect]
     Indication: HEAD AND NECK CANCER
     Dosage: START DATE OF FIRST COURSE:02DEC08,ASSOCIATED:29DEC08
     Dates: start: 20081229, end: 20081229
  2. CISPLATIN [Suspect]
     Indication: HEAD AND NECK CANCER
     Dosage: START DATE OF FIRST COURSE:02DEC08,ASSOCIATED:29DEC08
     Dates: start: 20081229, end: 20081229
  3. RADIATION THERAPY [Suspect]
     Indication: HEAD AND NECK CANCER
     Dosage: DOSAGE FORM=CGY;NO OF FRAC:32;NO OF ELAPSED:32
     Dates: start: 20090109, end: 20090109

REACTIONS (5)
  - DEHYDRATION [None]
  - DYSPHAGIA [None]
  - LYMPHOPENIA [None]
  - NAUSEA [None]
  - OESOPHAGEAL PAIN [None]
